FAERS Safety Report 4788682-6 (Version None)
Quarter: 2005Q3

REPORT INFORMATION
  Report Type: 
  Country: None (occurrence: None)
  Receive Date: 20050915
  Receipt Date: 20050520
  Transmission Date: 20060218
  Serious: No
  Sender: FDA-Public Use
  Company Number: BDI-007223

PATIENT
  Sex: Female

DRUGS (1)
  1. MULTIHANCE [Suspect]
     Dosage: 40 ML ONCE IV
     Route: 042
     Dates: start: 20050516, end: 20050516

REACTIONS (1)
  - SWELLING FACE [None]
